FAERS Safety Report 9502813 (Version 3)
Quarter: 2013Q3

REPORT INFORMATION
  Report Type: Spontaneous
  Country: GB (occurrence: GB)
  Receive Date: 20130906
  Receipt Date: 20130912
  Transmission Date: 20140515
  Serious: Yes (Congenital Anomaly)
  Sender: FDA-Public Use
  Company Number: GB-JNJFOC-JAUK37239

PATIENT
  Age: 0 Day
  Sex: 0
  Weight: 3.22 kg

DRUGS (1)
  1. VERMOX [Suspect]
     Indication: HELMINTHIC INFECTION
     Route: 064

REACTIONS (2)
  - Ankyloglossia congenital [Not Recovered/Not Resolved]
  - Foetal exposure during pregnancy [Recovered/Resolved]
